FAERS Safety Report 4318433-0 (Version None)
Quarter: 2004Q1

REPORT INFORMATION
  Report Type: 
  Country: None (occurrence: None)
  Receive Date: 20040315
  Receipt Date: 20040302
  Transmission Date: 20041129
  Serious: Yes (Death, Life-Threatening, Hospitalization)
  Sender: FDA-Public Use
  Company Number: 04P-161-0252275-00

PATIENT
  Age: 65 Year
  Sex: Female

DRUGS (2)
  1. BIAXIN [Suspect]
     Dosage: DISCONTINUED 3RD DAY
  2. IMIPENEM [Suspect]
     Indication: PYREXIA
     Dosage: 500 MG, 1 IN 6 HR, INTRAVENOUS
     Route: 042

REACTIONS (3)
  - APLASTIC ANAEMIA [None]
  - CARDIO-RESPIRATORY ARREST [None]
  - TOXIC EPIDERMAL NECROLYSIS [None]
